FAERS Safety Report 4712045-2 (Version None)
Quarter: 2005Q3

REPORT INFORMATION
  Report Type: 
  Country: None (occurrence: None)
  Receive Date: 20050712
  Receipt Date: 20050701
  Transmission Date: 20060218
  Serious: Yes (Other)
  Sender: FDA-Public Use
  Company Number: US-JNJFOC-20050701080

PATIENT
  Sex: Female
  Weight: 99.79 kg

DRUGS (2)
  1. TOPAMAX [Suspect]
     Indication: EPILEPSY
     Route: 049
  2. AMBIEN [Concomitant]
     Indication: SLEEP DISORDER THERAPY
     Route: 049

REACTIONS (4)
  - ARTHROPATHY [None]
  - LIGAMENT DISORDER [None]
  - SCOLIOSIS [None]
  - WEIGHT DECREASED [None]
